FAERS Safety Report 5420137-8 (Version None)
Quarter: 2007Q3

REPORT INFORMATION
  Report Type: 
  Country: None (occurrence: None)
  Receive Date: 20070820
  Receipt Date: 20070810
  Transmission Date: 20080115
  Serious: No
  Sender: FDA-Public Use
  Company Number: US-BAXTER-2007BH007070

PATIENT

DRUGS (1)
  1. PLASMA-LYTE 56 IN PLASTIC CONTAINER [Suspect]
     Indication: OFF LABEL USE
     Dosage: DOSE UNIT:UNKNOWN
     Route: 065

REACTIONS (1)
  - FALSE POSITIVE LABORATORY RESULT [None]
